FAERS Safety Report 12624431 (Version 1)
Quarter: 2016Q3

REPORT INFORMATION
  Report Type: Other
  Country: CH (occurrence: CH)
  Receive Date: 20160805
  Receipt Date: 20160805
  Transmission Date: 20161109
  Serious: Yes (Hospitalization)
  Sender: FDA-Public Use
  Company Number: CH-NOVEL LABORATORIES, INC-2016-03409

PATIENT
  Age: 69 Year
  Sex: Male

DRUGS (1)
  1. TRIMETHOPRIM-SULFAMETHOXAZOLE [Suspect]
     Active Substance: SULFAMETHOXAZOLE\TRIMETHOPRIM
     Indication: STAPHYLOCOCCAL INFECTION
     Dosage: TRIMETHOPRIM: 14.5MG/KG/DAY OF, SULFAMETHOXAZOLE: 70MG/KG/DAY
     Route: 065

REACTIONS (1)
  - Encephalopathy [Recovered/Resolved]
